FAERS Safety Report 15260969 (Version 1)
Quarter: 2018Q3

REPORT INFORMATION
  Report Type: Spontaneous
  Country: US (occurrence: US)
  Receive Date: 20180719
  Receipt Date: 20180719
  Transmission Date: 20181010
  Serious: Yes (Disabling)
  Sender: FDA-Public Use
  Company Number: None

PATIENT
  Age: 50 Year
  Sex: Female
  Weight: 67.5 kg

DRUGS (16)
  1. VITAMIN D [Concomitant]
     Active Substance: CHOLECALCIFEROL
  2. COQ10 [Concomitant]
     Active Substance: UBIDECARENONE
  3. FOREARM CRUTCHES [Concomitant]
  4. AMLODIPINE [Concomitant]
     Active Substance: AMLODIPINE BESYLATE
  5. CALCIUM [Concomitant]
     Active Substance: CALCIUM
  6. CRANBERRY PILLS [Concomitant]
  7. GLUCOSAMIN AND CHONDROITIN [Concomitant]
  8. CIPRO [Suspect]
     Active Substance: CIPROFLOXACIN HYDROCHLORIDE
     Indication: URINARY TRACT INFECTION
     Dosage: ?          QUANTITY:1 CAPSULE(S);?
     Route: 048
     Dates: start: 20171223, end: 20180404
  9. BENAZEPRIL [Concomitant]
     Active Substance: BENAZEPRIL HYDROCHLORIDE
  10. METOPROLOL. [Concomitant]
     Active Substance: METOPROLOL
  11. D?MAN NOSE [Concomitant]
  12. DOXAZOSIN [Concomitant]
     Active Substance: DOXAZOSIN\DOXAZOSIN MESYLATE
  13. BROMELAIN [Concomitant]
     Active Substance: BROMELAINS
  14. KAFO (BRACE) [Concomitant]
  15. MULTI VITAMIN [Concomitant]
     Active Substance: VITAMINS
  16. TURMERIC [Concomitant]
     Active Substance: HERBALS\TURMERIC

REACTIONS (8)
  - Ligament sprain [None]
  - Tendon disorder [None]
  - Muscle spasms [None]
  - Urinary tract infection [None]
  - Musculoskeletal pain [None]
  - Pain [None]
  - Back pain [None]
  - Muscle contractions involuntary [None]

NARRATIVE: CASE EVENT DATE: 20180117
